FAERS Safety Report 4389815-0 (Version None)
Quarter: 2004Q2

REPORT INFORMATION
  Report Type: 
  Country: None (occurrence: None)
  Receive Date: 20040630
  Receipt Date: 20040616
  Transmission Date: 20050107
  Serious: No
  Sender: FDA-Public Use
  Company Number: B0335837A

PATIENT
  Age: 27 Year
  Sex: Female

DRUGS (1)
  1. VALTREX [Suspect]
     Indication: HERPES SIMPLEX
     Dosage: 2000 MG TWICE PER DAY ORAL
     Route: 048

REACTIONS (9)
  - ANTINUCLEAR ANTIBODY POSITIVE [None]
  - C-REACTIVE PROTEIN INCREASED [None]
  - DISEASE RECURRENCE [None]
  - HERPES SIMPLEX [None]
  - HYPOAESTHESIA [None]
  - MONONEUROPATHY MULTIPLEX [None]
  - PARAESTHESIA [None]
  - RED BLOOD CELL SEDIMENTATION RATE INCREASED [None]
  - VASCULITIS NECROTISING [None]
